FAERS Safety Report 9871279 (Version 1)
Quarter: 2014Q1

REPORT INFORMATION
  Report Type: Report from Study
  Country: FR (occurrence: FR)
  Receive Date: 20140205
  Receipt Date: 20140205
  Transmission Date: 20141002
  Serious: Yes (Hospitalization)
  Sender: FDA-Public Use
  Company Number: FR-GLAXOSMITHKLINE-B0884465A

PATIENT
  Age: 48 Year
  Sex: Female
  Weight: 115 kg

DRUGS (6)
  1. TOPOTECAN HYDROCHLORIDE [Suspect]
     Indication: OVARIAN CANCER
     Dosage: 2.81MG PER DAY
     Route: 042
     Dates: start: 20130311
  2. PERTUZUMAB [Suspect]
     Indication: OVARIAN CANCER
     Dosage: 840MG PER DAY
     Route: 042
     Dates: start: 20130311
  3. APROVEL [Concomitant]
     Dosage: 30MG PER DAY
     Route: 065
     Dates: start: 20130322, end: 20130328
  4. PREDNISONE [Concomitant]
     Route: 065
     Dates: start: 20130321
  5. TRAMADOL [Concomitant]
     Dosage: 200MG PER DAY
     Route: 065
     Dates: start: 201301
  6. INEXIUM [Concomitant]
     Dosage: 40MG PER DAY
     Route: 065
     Dates: start: 198301

REACTIONS (1)
  - Haematotoxicity [Recovered/Resolved]
